FAERS Safety Report 21342785 (Version 1)
Quarter: 2022Q3

REPORT INFORMATION
  Report Type: Spontaneous
  Country: DE (occurrence: DE)
  Receive Date: 20220916
  Receipt Date: 20220916
  Transmission Date: 20221027
  Serious: Yes (Other)
  Sender: FDA-Public Use
  Company Number: DE-Shilpa Medicare Limited-SML-DE-2022-01119

PATIENT
  Age: 53 Year
  Sex: Male

DRUGS (4)
  1. GEMCITABINE [Suspect]
     Active Substance: GEMCITABINE
     Indication: Cholangiocarcinoma
     Dates: start: 201710
  2. GEMCITABINE [Suspect]
     Active Substance: GEMCITABINE
     Dates: start: 202011
  3. CISPLATIN [Suspect]
     Active Substance: CISPLATIN
     Indication: Cholangiocarcinoma
     Dates: start: 201710, end: 201802
  4. OXALIPLATIN [Suspect]
     Active Substance: OXALIPLATIN
     Indication: Cholangiocarcinoma
     Dates: start: 202011

REACTIONS (9)
  - Polyneuropathy [Unknown]
  - Metastases to peritoneum [Unknown]
  - Metastases to lymph nodes [Unknown]
  - Pancytopenia [Unknown]
  - Metastases to liver [Unknown]
  - Ascites [Unknown]
  - Splenomegaly [Unknown]
  - Hepatic fibrosis [Unknown]
  - Drug intolerance [Unknown]

NARRATIVE: CASE EVENT DATE: 20181001
